FAERS Safety Report 6969057-8 (Version None)
Quarter: 2010Q3

REPORT INFORMATION
  Report Type: 
  Country: None (occurrence: None)
  Receive Date: 20100907
  Receipt Date: 20100831
  Transmission Date: 20110219
  Serious: Yes (Hospitalization)
  Sender: FDA-Public Use
  Company Number: FR-AMGEN-QUU435949

PATIENT
  Age: 60 Year
  Sex: Female

DRUGS (2)
  1. ENBREL [Suspect]
     Indication: ANKYLOSING SPONDYLITIS
     Dosage: UNKNOWN
     Route: 058
     Dates: start: 20061201, end: 20070201
  2. HUMIRA [Suspect]
     Indication: ANKYLOSING SPONDYLITIS
     Dosage: UNKNOWN
     Route: 058
     Dates: start: 20070101, end: 20100328

REACTIONS (2)
  - DRUG INEFFECTIVE [None]
  - LUNG ADENOCARCINOMA [None]
